FAERS Safety Report 24056477 (Version 1)
Quarter: 2024Q3

REPORT INFORMATION
  Report Type: Spontaneous
  Country: US (occurrence: US)
  Receive Date: 20240705
  Receipt Date: 20240705
  Transmission Date: 20241017
  Serious: No
  Sender: DR REDDYS
  Company Number: None

PATIENT
  Age: 6 Year
  Sex: Male

DRUGS (7)
  1. DOXORUBICIN [Suspect]
     Active Substance: DOXORUBICIN
     Indication: Osteosarcoma
     Dosage: 2 CYCLES, EACH LASTING 5 WEEKS
  2. MESNA [Suspect]
     Active Substance: MESNA
     Indication: Osteosarcoma
     Dosage: FOR TWO CYCLES, EACH LASTING 4 WEEKS
  3. LEUCOVORIN [Suspect]
     Active Substance: LEUCOVORIN\LEUCOVORIN CALCIUM
     Indication: Osteosarcoma
     Dosage: 2 CYCLES, EACH LASTING 5 WEEKS
  4. METHOTREXATE [Suspect]
     Active Substance: METHOTREXATE
     Indication: Osteosarcoma
     Dosage: 2 CYCLES, EACH LASTING 5 WEEKS
  5. ETOPOSIDE [Suspect]
     Active Substance: ETOPOSIDE
     Indication: Osteosarcoma
     Dosage: FOR TWO CYCLES, EACH LASTING 4 WEEKS
  6. CISPLATIN [Suspect]
     Active Substance: CISPLATIN
     Indication: Osteosarcoma
     Dosage: 2 CYCLES, EACH LASTING 5 WEEKS
  7. IFOSFAMIDE [Suspect]
     Active Substance: IFOSFAMIDE
     Indication: Osteosarcoma
     Dosage: FOR TWO CYCLES, EACH LASTING 4 WEEKS

REACTIONS (1)
  - Weight decreased [Unknown]
